FAERS Safety Report 4369100-9 (Version None)
Quarter: 2004Q2

REPORT INFORMATION
  Report Type: 
  Country: None (occurrence: None)
  Receive Date: 20040527
  Receipt Date: 20040504
  Transmission Date: 20050107
  Serious: Yes (Life-Threatening, Hospitalization)
  Sender: FDA-Public Use
  Company Number: A03200401424

PATIENT
  Age: 58 Year
  Sex: Male
  Weight: 74 kg

DRUGS (10)
  1. PLAVIX [Suspect]
     Indication: ANTIPLATELET THERAPY
     Dosage: 300 MG ONCE ORAL
     Route: 048
     Dates: start: 20040113, end: 20040113
  2. ASA - ACETYLSALICYLIC ACID 325 MG [Suspect]
     Indication: ANTIPLATELET THERAPY
     Dosage: ORAL
     Route: 048
     Dates: start: 20040113, end: 20040113
  3. ANGIOMAX [Suspect]
     Indication: ACUTE CORONARY SYNDROME
     Dosage: 7.4 MG BOLUS IV FOLLOWED BY 18.5 MG INFUSION IV - INTRAVENOUS NOS
     Route: 042
     Dates: start: 20040113, end: 20040114
  4. INTEGRILIN [Suspect]
     Indication: ACUTE CORONARY SYNDROME
     Dosage: 13.32 MG  BOLUS IV FOLLOWED BY 0.36 MG INFUSION IV - INTRAVENOUS NOS
     Route: 042
     Dates: start: 20040113, end: 20040114
  5. METOPROLOL TARTRATE [Concomitant]
  6. HYDROCHLOROTHIAZIDE [Concomitant]
  7. ESOMEPRAZOLE [Concomitant]
  8. NIACIN [Concomitant]
  9. SENNA FRUIT [Concomitant]
  10. HEPARIN [Concomitant]

REACTIONS (9)
  - ACUTE RESPIRATORY DISTRESS SYNDROME [None]
  - ATELECTASIS [None]
  - COAGULOPATHY [None]
  - HAEMATOCRIT DECREASED [None]
  - HAEMOGLOBIN DECREASED [None]
  - HAEMORRHAGE [None]
  - PLEURAL EFFUSION [None]
  - POST PROCEDURAL COMPLICATION [None]
  - PULMONARY OEDEMA [None]
